FAERS Safety Report 7744057-9 (Version None)
Quarter: 2011Q3

REPORT INFORMATION
  Report Type: 
  Country: None (occurrence: None)
  Receive Date: 20110825
  Receipt Date: 20110810
  Transmission Date: 20111222
  Serious: Yes (Hospitalization)
  Sender: FDA-Public Use
  Company Number: PNIS20110006

PATIENT
  Age: 70 Year
  Sex: Female

DRUGS (5)
  1. PREDNISOLONE [Suspect]
     Indication: COLLAGEN-VASCULAR DISEASE
     Dosage: 40 MG, 1 IN 1 D, ORAL : 35 MG, 1 IN 1 D, ORAL : 17.5 MG, 1 IN 1 D, ORAL
     Route: 048
     Dates: start: 20080901
  2. PREDNISOLONE [Suspect]
     Indication: COLLAGEN-VASCULAR DISEASE
     Dosage: 40 MG, 1 IN 1 D, ORAL : 35 MG, 1 IN 1 D, ORAL : 17.5 MG, 1 IN 1 D, ORAL
     Route: 048
     Dates: start: 20080201, end: 20080201
  3. PREDNISOLONE [Suspect]
     Indication: COLLAGEN-VASCULAR DISEASE
     Dosage: 40 MG, 1 IN 1 D, ORAL : 35 MG, 1 IN 1 D, ORAL : 17.5 MG, 1 IN 1 D, ORAL
     Route: 048
     Dates: start: 20080201, end: 20080901
  4. MIZORIBINE (MIZORIBINE) (150 MILLIGRAM, UNKNOWN) [Suspect]
     Indication: COLLAGEN-VASCULAR DISEASE
     Dosage: 150 MG, 1 IN 1 D, ORAL
     Route: 048
     Dates: start: 20080201, end: 20080901
  5. CYCLOPHOSPHAMIDE [Suspect]
     Indication: COLLAGEN-VASCULAR DISEASE
     Dosage: 800 MG, TWO DOSES, ORAL
     Route: 048
     Dates: start: 20080201, end: 20080201

REACTIONS (4)
  - ENDOCARDITIS [None]
  - WEGENER'S GRANULOMATOSIS [None]
  - CARDIAC FAILURE CONGESTIVE [None]
  - COLLAGEN-VASCULAR DISEASE [None]
